FAERS Safety Report 25023926 (Version 1)
Quarter: 2025Q1

REPORT INFORMATION
  Report Type: Spontaneous
  Country: US (occurrence: None)
  Receive Date: 20250228
  Receipt Date: 20250228
  Transmission Date: 20250409
  Serious: Yes (unspecified)
  Sender: FDA-CTU
  Company Number: None

PATIENT
  Age: 52 Year
  Sex: Female
  Weight: 66 kg

DRUGS (1)
  1. TEZEPELUMAB-EKKO [Suspect]
     Active Substance: TEZEPELUMAB-EKKO
     Indication: Asthma
     Route: 058
     Dates: start: 20250109, end: 20250109

REACTIONS (5)
  - Angioedema [None]
  - Flushing [None]
  - Pruritus [None]
  - Dyspnoea [None]
  - Injection related reaction [None]

NARRATIVE: CASE EVENT DATE: 20250109
